FAERS Safety Report 17429915 (Version 2)
Quarter: 2020Q1

REPORT INFORMATION
  Report Type: Spontaneous
  Country: US (occurrence: US)
  Receive Date: 20200218
  Receipt Date: 20200227
  Transmission Date: 20200409
  Serious: No
  Sender: FDA-Public Use
  Company Number: US-PFIZER INC-2020065290

PATIENT
  Age: 72 Year
  Sex: Female
  Weight: 85.28 kg

DRUGS (1)
  1. CELEBREX [Suspect]
     Active Substance: CELECOXIB
     Indication: ARTHRITIS
     Dosage: 400 MG, DAILY (TWO CAPSULES A DAY, BY MOUTH)
     Route: 048

REACTIONS (3)
  - Intentional product use issue [Unknown]
  - Cough [Unknown]
  - Nasopharyngitis [Unknown]
